FAERS Safety Report 6171973-4 (Version None)
Quarter: 2009Q2

REPORT INFORMATION
  Report Type: 
  Country: None (occurrence: None)
  Receive Date: 20090429
  Receipt Date: 20090421
  Transmission Date: 20091009
  Serious: Yes (Other)
  Sender: FDA-Public Use
  Company Number: PHHY2009DE15059

PATIENT
  Age: 49 Year
  Sex: Male

DRUGS (1)
  1. CYCLOSPORINE [Suspect]
     Indication: STEM CELL TRANSPLANT

REACTIONS (9)
  - CHRONIC GRAFT VERSUS HOST DISEASE [None]
  - IMMUNOSUPPRESSANT DRUG LEVEL DECREASED [None]
  - INDURATION [None]
  - MOBILITY DECREASED [None]
  - MUSCLE ATROPHY [None]
  - MUSCLE TIGHTNESS [None]
  - MUSCULAR WEAKNESS [None]
  - NECK PAIN [None]
  - OBLITERATIVE BRONCHIOLITIS [None]
